FAERS Safety Report 4764970-4 (Version None)
Quarter: 2005Q3

REPORT INFORMATION
  Report Type: 
  Country: None (occurrence: None)
  Receive Date: 20050909
  Receipt Date: 20050722
  Transmission Date: 20060218
  Serious: Yes (Other)
  Sender: FDA-Public Use
  Company Number: NL-ROCHE-411554

PATIENT
  Age: 42 Year
  Sex: Male
  Weight: 71 kg

DRUGS (13)
  1. INTERFERON ALFA-2A [Suspect]
     Dosage: ROUTE: INTRACUTANEOUS.
     Route: 050
     Dates: start: 20040426, end: 20040502
  2. INTERFERON ALFA-2A [Suspect]
     Route: 050
     Dates: start: 20040503, end: 20040516
  3. INTERFERON ALFA-2A [Suspect]
     Route: 050
     Dates: start: 20040517, end: 20040524
  4. PEG-INTERFERON ALFA 2A (RO 25-8310) [Suspect]
     Dosage: ROUTE: INTRACUTANEOUS.
     Route: 050
     Dates: start: 20040426, end: 20050525
  5. RIBAVIRIN [Suspect]
     Route: 048
     Dates: start: 20040426, end: 20050525
  6. PARACETAMOL [Concomitant]
     Dates: start: 20040426
  7. CETIRIZINE HCL [Concomitant]
     Dates: start: 20040610
  8. CITALOPRAM [Concomitant]
     Dates: start: 20041025
  9. SUMATRIPTAN SUCCINATE [Concomitant]
     Dates: start: 20041122
  10. ZOPICLON [Concomitant]
     Dates: start: 20041015
  11. DOMPERIDON [Concomitant]
     Dates: start: 20050405
  12. HEROIN [Concomitant]
     Dosage: SEVERAL TIMES ABUSE IN LARGE AMOUNTS.
  13. COCAINE [Concomitant]
     Dosage: SEVERAL TIMES ABUSE IN LARGE AMOUNTS.

REACTIONS (5)
  - ANAEMIA [None]
  - DEPRESSION [None]
  - DRUG DEPENDENCE [None]
  - NEUTROPENIA [None]
  - WEIGHT DECREASED [None]
